FAERS Safety Report 7518820 (Version 2)
Quarter: 2013Q2

REPORT INFORMATION
  Report Type: Report from Study
  Country: AR (occurrence: AR)
  Receive Date: 20100802
  Receipt Date: 20130530
  Transmission Date: 20140414
  Serious: Yes (Death)
  Sender: FDA-Public Use
  Company Number: PHHY2010AR49780

PATIENT
  Age: 76 Year
  Sex: Male

DRUGS (4)
  1. EXELON PATCH [Suspect]
     Indication: DEMENTIA ALZHEIMER^S TYPE
     Dosage: 1 DF, QD (5 CM PATCH)
     Route: 062
  2. STALEVO [Suspect]
     Dosage: 100 MG, UNK
  3. STALEVO [Suspect]
     Dosage: 150 MG, UNK
  4. DIOVAN [Suspect]
     Dosage: 160 MG, UNK
     Route: 048

REACTIONS (1)
  - Pneumonia [Fatal]
